FAERS Safety Report 5377501-5 (Version None)
Quarter: 2007Q3

REPORT INFORMATION
  Report Type: 
  Country: None (occurrence: None)
  Receive Date: 20070703
  Receipt Date: 20070622
  Transmission Date: 20080115
  Serious: Yes (Hospitalization)
  Sender: FDA-Public Use
  Company Number: JP-ELI_LILLY_AND_COMPANY-JP200705007194

PATIENT
  Age: 57 Year
  Sex: Female
  Weight: 51 kg

DRUGS (9)
  1. RALOXIFENE HYDROCHLORIDE [Suspect]
     Indication: OSTEOPOROSIS POSTMENOPAUSAL
     Dosage: 60 MG, DAILY (1/D)
     Route: 048
     Dates: start: 20050218
  2. HOCHUUEKKITOU [Concomitant]
     Indication: ASTHENIA
     Dosage: 7.5 G, DAILY (1/D)
     Route: 048
     Dates: start: 20041009, end: 20050610
  3. DOCETAXEL [Concomitant]
     Indication: OVARIAN CANCER
     Dosage: 70 MG, DAILY (1/D)
     Route: 042
     Dates: start: 20041025, end: 20050902
  4. ASPARA-CA [Concomitant]
     Indication: OSTEOPOROSIS
     Dosage: 750 MG, DAILY (1/D)
     Route: 048
     Dates: end: 20060510
  5. ASPARA-CA [Concomitant]
     Dosage: 1200 MG, DAILY (1/D)
     Route: 048
     Dates: start: 20050218, end: 20051005
  6. ASPARA-CA [Concomitant]
     Dosage: 600 MG, DAILY (1/D)
     Route: 048
     Dates: start: 20051006
  7. ALFAROL [Concomitant]
     Indication: OSTEOPOROSIS
     Dosage: 1 UG, DAILY (1/D)
     Route: 048
     Dates: start: 20050218, end: 20051205
  8. MAGNESIUM OXIDE [Concomitant]
     Indication: CONSTIPATION
     Dosage: 1.5 G, DAILY (1/D)
     Route: 048
  9. TAXOTERE [Concomitant]
     Indication: OVARIAN CANCER RECURRENT
     Dosage: 105 MG, UNKNOWN
     Route: 042
     Dates: start: 20061110

REACTIONS (1)
  - OVARIAN CANCER RECURRENT [None]
